FAERS Safety Report 13550769 (Version 2)
Quarter: 2017Q3

REPORT INFORMATION
  Report Type: Spontaneous
  Country: US (occurrence: US)
  Receive Date: 20170516
  Receipt Date: 20170724
  Transmission Date: 20171127
  Serious: No
  Sender: FDA-Public Use
  Company Number: US-009507513-1705USA000838

PATIENT
  Sex: Female
  Weight: 118.1 kg

DRUGS (2)
  1. NEXPLANON [Suspect]
     Active Substance: ETONOGESTREL
     Dosage: 1 DF, UNK
     Route: 058
     Dates: start: 20170613
  2. NEXPLANON [Suspect]
     Active Substance: ETONOGESTREL
     Indication: CONTRACEPTION
     Dosage: 1 DF, UNK
     Route: 058
     Dates: start: 20170221, end: 20170427

REACTIONS (2)
  - Device breakage [Recovered/Resolved]
  - No adverse event [Unknown]
